FAERS Safety Report 4320382-9 (Version None)
Quarter: 2004Q1

REPORT INFORMATION
  Report Type: 
  Country: None (occurrence: None)
  Receive Date: 20040317
  Receipt Date: 20040309
  Transmission Date: 20041129
  Serious: Yes (Hospitalization)
  Sender: FDA-Public Use
  Company Number: 2003-12-1614

PATIENT
  Age: 1 Year
  Sex: Female
  Weight: 11 kg

DRUGS (5)
  1. GENTAMICIN SULFATE [Suspect]
     Indication: SEPSIS
     Dosage: 60 MG DIV QD
     Dates: start: 20031128, end: 20031212
  2. AMPICILLIN [Suspect]
     Indication: SEPSIS
     Dosage: 3000 MG/DAY INTRAVENOUS
     Route: 042
     Dates: start: 20031128, end: 20031212
  3. CEFOTIAM HYDROCHLORIDE [Concomitant]
  4. PIPERACILLIN SODIUM [Concomitant]
  5. CEFTAZIDIME [Concomitant]

REACTIONS (3)
  - C-REACTIVE PROTEIN INCREASED [None]
  - DISEASE RECURRENCE [None]
  - PYREXIA [None]
